FAERS Safety Report 14661316 (Version 1)
Quarter: 2018Q1

REPORT INFORMATION
  Report Type: Spontaneous
  Country: US (occurrence: US)
  Receive Date: 20180320
  Receipt Date: 20180320
  Transmission Date: 20180509
  Serious: No
  Sender: FDA-Public Use
  Company Number: US-BIOGEN-2018BI00544454

PATIENT
  Age: 58 Year
  Sex: Female

DRUGS (1)
  1. TYSABRI [Suspect]
     Active Substance: NATALIZUMAB
     Indication: MULTIPLE SCLEROSIS
     Route: 065
     Dates: start: 20150904

REACTIONS (5)
  - Pyrexia [Unknown]
  - Fatigue [Unknown]
  - Sinusitis [Unknown]
  - Feeling abnormal [Unknown]
  - Viral infection [Unknown]

NARRATIVE: CASE EVENT DATE: 20180112
